FAERS Safety Report 24266999 (Version 6)
Quarter: 2025Q1

REPORT INFORMATION
  Report Type: Spontaneous
  Country: US (occurrence: None)
  Receive Date: 20240830
  Receipt Date: 20250312
  Transmission Date: 20250409
  Serious: Yes (Hospitalization, Other)
  Sender: ADAMAS PHARMA
  Company Number: US-ADAMAS Pharma-ADM202408-003079

PATIENT
  Age: 74 Year
  Sex: Male

DRUGS (30)
  1. GOCOVRI [Suspect]
     Active Substance: AMANTADINE
     Indication: Dyskinesia
     Route: 048
     Dates: start: 20240814
  2. GOCOVRI [Suspect]
     Active Substance: AMANTADINE
     Indication: Parkinson^s disease
     Dosage: 137MG TOTAL
     Route: 048
     Dates: start: 20240814
  3. GOCOVRI [Suspect]
     Active Substance: AMANTADINE
     Route: 048
     Dates: start: 2024
  4. ALBUTEROL [Concomitant]
     Active Substance: ALBUTEROL
  5. AMANTADINE [Concomitant]
     Active Substance: AMANTADINE
  6. ASPIRIN [Concomitant]
     Active Substance: ASPIRIN
  7. ATORVASTATIN [Concomitant]
     Active Substance: ATORVASTATIN
  8. BUSPIRONE [Concomitant]
     Active Substance: BUSPIRONE HYDROCHLORIDE
  9. CARBIDOPA\LEVODOPA [Concomitant]
     Active Substance: CARBIDOPA\LEVODOPA
  10. CLONAZEPAM [Concomitant]
     Active Substance: CLONAZEPAM
  11. DONEPEZIL [Concomitant]
     Active Substance: DONEPEZIL
  12. ELIQUIS [Concomitant]
     Active Substance: APIXABAN
  13. FAMOTIDINE [Concomitant]
     Active Substance: FAMOTIDINE
  14. GLIPIZIDE [Concomitant]
     Active Substance: GLIPIZIDE
  15. LEVOTHYROXINE [Concomitant]
     Active Substance: LEVOTHYROXINE
  16. LOSARTAN POTASSIUM [Concomitant]
     Active Substance: LOSARTAN POTASSIUM
  17. OMEPRAZOLE [Concomitant]
     Active Substance: OMEPRAZOLE
  18. MONTELUKAST [Concomitant]
     Active Substance: MONTELUKAST
  19. RYTARY [Concomitant]
     Active Substance: CARBIDOPA\LEVODOPA
  20. RYTARY [Concomitant]
     Active Substance: CARBIDOPA\LEVODOPA
  21. SERTRALINE [Concomitant]
     Active Substance: SERTRALINE HYDROCHLORIDE
  22. SYMBICORT [Concomitant]
     Active Substance: BUDESONIDE\FORMOTEROL FUMARATE DIHYDRATE
  23. TAMSULOSIN [Concomitant]
     Active Substance: TAMSULOSIN
  24. DOXYCYCLINE HYCLATE [Concomitant]
     Active Substance: DOXYCYCLINE HYCLATE
  25. IRON [Concomitant]
     Active Substance: IRON
  26. PANTOPRAZOLE [Concomitant]
     Active Substance: PANTOPRAZOLE
  27. DOXYCYCLINE [Concomitant]
     Active Substance: DOXYCYCLINE
  28. TESSALON [Concomitant]
     Active Substance: BENZONATATE
  29. AZELASTINE [Concomitant]
     Active Substance: AZELASTINE
  30. ONDANSETRON [Concomitant]
     Active Substance: ONDANSETRON

REACTIONS (20)
  - Pulmonary oedema [Not Recovered/Not Resolved]
  - Cardiac valve disease [Not Recovered/Not Resolved]
  - COVID-19 pneumonia [Not Recovered/Not Resolved]
  - Condition aggravated [Not Recovered/Not Resolved]
  - Asthma [Not Recovered/Not Resolved]
  - Balance disorder [Not Recovered/Not Resolved]
  - Grip strength decreased [Not Recovered/Not Resolved]
  - Tremor [Not Recovered/Not Resolved]
  - Sinusitis [Not Recovered/Not Resolved]
  - Urinary incontinence [Not Recovered/Not Resolved]
  - Bruxism [Not Recovered/Not Resolved]
  - Drooling [Unknown]
  - Oral herpes [Recovered/Resolved]
  - Lip swelling [Not Recovered/Not Resolved]
  - Norovirus infection [Unknown]
  - Dizziness postural [Not Recovered/Not Resolved]
  - Fall [Not Recovered/Not Resolved]
  - Orthostatic hypotension [Not Recovered/Not Resolved]
  - Drug ineffective [Unknown]
  - Drug effect less than expected [Unknown]

NARRATIVE: CASE EVENT DATE: 20240816
